FAERS Safety Report 8846928 (Version 1)
Quarter: 2012Q4

REPORT INFORMATION
  Report Type: Spontaneous
  Country: US (occurrence: None)
  Receive Date: 20121016
  Receipt Date: 20121016
  Transmission Date: 20130627
  Serious: Yes (Hospitalization)
  Sender: FDA-Public Use
  Company Number: NSR_00683_2012

PATIENT
  Age: 31 Year
  Sex: Male

DRUGS (3)
  1. TRAMADOL [Suspect]
     Indication: PRODUCT USED FOR UNKNOWN INDICATION
     Dosage: (84 tablets (not the prescribed dose)), (50 mg, as needed)
  2. DULOXETINE [Concomitant]
  3. RISPERIDONE [Concomitant]

REACTIONS (11)
  - Suicide attempt [None]
  - Blood pressure increased [None]
  - Postictal state [None]
  - Anxiety [None]
  - White blood cell count increased [None]
  - Drug screen false positive [None]
  - Tonic convulsion [None]
  - Hyperadrenalism [None]
  - Toxicity to various agents [None]
  - Blood glucose decreased [None]
  - Incorrect dose administered [None]
